FAERS Safety Report 24322686 (Version 2)
Quarter: 2024Q4

REPORT INFORMATION
  Report Type: Spontaneous
  Country: PL (occurrence: PL)
  Receive Date: 20240916
  Receipt Date: 20241029
  Transmission Date: 20250114
  Serious: Yes (Hospitalization)
  Sender: MYLAN
  Company Number: PL-MYLANLABS-2024M1082534

PATIENT
  Age: 28 Year
  Sex: Female

DRUGS (4)
  1. GABAPENTIN [Suspect]
     Active Substance: GABAPENTIN
     Indication: Focal dyscognitive seizures
     Dosage: 300 MILLIGRAM, UNK (UP TO 3 ? 300 MG)
     Route: 065
  2. GABAPENTIN [Suspect]
     Active Substance: GABAPENTIN
     Dosage: UNK
     Route: 065
  3. PHENYTOIN [Suspect]
     Active Substance: PHENYTOIN
     Indication: Status epilepticus
     Dosage: 500 MILLIGRAM
     Route: 042
  4. PHENYTOIN [Suspect]
     Active Substance: PHENYTOIN
     Dosage: 700 MILLIGRAM
     Route: 042

REACTIONS (2)
  - Therapeutic product effect incomplete [Unknown]
  - Maternal exposure during pregnancy [Recovered/Resolved]
